FAERS Safety Report 4700694-7 (Version None)
Quarter: 2005Q2

REPORT INFORMATION
  Report Type: 
  Country: None (occurrence: None)
  Receive Date: 20050627
  Receipt Date: 20050317
  Transmission Date: 20051028
  Serious: Yes (Death)
  Sender: FDA-Public Use
  Company Number: US-MERCK-0503USA03450

PATIENT
  Age: 46 Year
  Sex: Female
  Weight: 63 kg

DRUGS (8)
  1. VIOXX [Suspect]
     Indication: SHOULDER PAIN
     Route: 048
     Dates: start: 20010301, end: 20030301
  2. LOESTRIN 1.5/30 [Concomitant]
     Route: 065
     Dates: start: 20020301, end: 20030301
  3. TENORMIN [Concomitant]
     Route: 065
  4. PROTONIX [Concomitant]
     Route: 065
  5. TUMS [Concomitant]
     Route: 065
  6. ASPIRIN [Concomitant]
     Route: 065
     Dates: start: 20030315, end: 20030315
  7. MYLANTA + MYLANTA DS [Concomitant]
     Route: 065
  8. TOPROL-XL [Concomitant]
     Route: 065
     Dates: start: 19950301, end: 20030301

REACTIONS (9)
  - ABDOMINAL PAIN [None]
  - ACUTE MYOCARDIAL INFARCTION [None]
  - ARTERIOSCLEROSIS [None]
  - BACK PAIN [None]
  - DYSPNOEA [None]
  - GASTROOESOPHAGEAL REFLUX DISEASE [None]
  - INTERSTITIAL LUNG DISEASE [None]
  - PULMONARY CONGESTION [None]
  - PULMONARY OEDEMA [None]
